FAERS Safety Report 12110759 (Version 3)
Quarter: 2016Q1

REPORT INFORMATION
  Report Type: Spontaneous
  Country: IT (occurrence: IT)
  Receive Date: 20160224
  Receipt Date: 20160310
  Transmission Date: 20160526
  Serious: Yes (Hospitalization)
  Sender: FDA-Public Use
  Company Number: IT-GILEAD-2016-0199638

PATIENT
  Age: 72 Year
  Sex: Female

DRUGS (5)
  1. ACYCLOVIR                          /00587301/ [Concomitant]
     Active Substance: ACYCLOVIR
     Indication: PROPHYLAXIS
     Dosage: 1200 MG, QD
     Route: 048
     Dates: start: 201504, end: 20160125
  2. VFEND [Concomitant]
     Active Substance: VORICONAZOLE
     Indication: PROPHYLAXIS
     Dosage: 400 MG, QD
     Route: 048
     Dates: start: 201507, end: 20160125
  3. ZYDELIG [Suspect]
     Active Substance: IDELALISIB
     Indication: CHRONIC LYMPHOCYTIC LEUKAEMIA
     Dosage: 150 MG, BID
     Route: 048
     Dates: start: 20151104, end: 20160201
  4. EPREX [Concomitant]
     Active Substance: ERYTHROPOIETIN
     Indication: PROPHYLAXIS
     Dosage: 40000 IU, Q1WK
     Route: 058
     Dates: start: 201504
  5. ZYDELIG [Suspect]
     Active Substance: IDELALISIB
     Dosage: 100 MG, BID
     Route: 048
     Dates: start: 20160301

REACTIONS (1)
  - Perivascular dermatitis [Recovered/Resolved]

NARRATIVE: CASE EVENT DATE: 20160125
